FAERS Safety Report 24535622 (Version 2)
Quarter: 2024Q4

REPORT INFORMATION
  Report Type: Report from Study
  Country: HR (occurrence: HR)
  Receive Date: 20241022
  Receipt Date: 20241118
  Transmission Date: 20250115
  Serious: Yes (Hospitalization)
  Sender: ABBVIE
  Company Number: HR-ABBVIE-5965670

PATIENT
  Age: 64 Year
  Sex: Female

DRUGS (1)
  1. FOSCARBIDOPA\FOSLEVODOPA [Suspect]
     Active Substance: FOSCARBIDOPA\FOSLEVODOPA
     Indication: Parkinson^s disease
     Route: 058
     Dates: start: 20240926

REACTIONS (9)
  - Malaise [Unknown]
  - Tremor [Unknown]
  - Dry mouth [Unknown]
  - Panic attack [Unknown]
  - Musculoskeletal disorder [Unknown]
  - Decreased appetite [Unknown]
  - Anxiety [Unknown]
  - Nausea [Unknown]
  - Fear [Recovered/Resolved]

NARRATIVE: CASE EVENT DATE: 20240101
